FAERS Safety Report 17974662 (Version 1)
Quarter: 2020Q3

REPORT INFORMATION
  Report Type: Spontaneous
  Country: US (occurrence: US)
  Receive Date: 20200702
  Receipt Date: 20200702
  Transmission Date: 20201103
  Serious: No
  Sender: FDA-Public Use
  Company Number: US-AMNEAL PHARMACEUTICALS-2020-AMRX-01267

PATIENT
  Age: 16 Year
  Sex: Female
  Weight: 90.72 kg

DRUGS (1)
  1. ELURYNG [Suspect]
     Active Substance: ETHINYL ESTRADIOL\ETONOGESTREL
     Indication: CONTRACEPTION
     Dosage: 1 ELURYNG AND KEEP IT IN PLACE FOR 3 WEEKS, REMOVED FOR 1 WEEK THEN USE A NEW ONE
     Route: 067
     Dates: start: 202003

REACTIONS (1)
  - Ear pain [Not Recovered/Not Resolved]

NARRATIVE: CASE EVENT DATE: 202003
